FAERS Safety Report 7784492-6 (Version None)
Quarter: 2011Q3

REPORT INFORMATION
  Report Type: 
  Country: None (occurrence: None)
  Receive Date: 20110928
  Receipt Date: 20110920
  Transmission Date: 20111222
  Serious: Yes (Hospitalization, Disabling)
  Sender: FDA-Public Use
  Company Number: DE-CEPHALON-2011005099

PATIENT
  Sex: Male
  Weight: 57 kg

DRUGS (10)
  1. NEBIVOLOL HCL [Concomitant]
  2. SPIRIVA [Concomitant]
  3. RAMIPRIL [Concomitant]
  4. TROMCARDIN [Concomitant]
  5. SIMVASTATIN [Concomitant]
  6. TORSEMIDE [Concomitant]
  7. TREANDA [Suspect]
     Indication: CHRONIC LYMPHOCYTIC LEUKAEMIA
     Route: 042
     Dates: start: 20110513, end: 20110713
  8. AMIOHEXAL [Concomitant]
  9. FALITHROM [Concomitant]
  10. DOXEPIN [Concomitant]

REACTIONS (7)
  - RESPIRATORY DISTRESS [None]
  - WEIGHT DECREASED [None]
  - TACHYCARDIA [None]
  - ASTHENIA [None]
  - GENERAL PHYSICAL HEALTH DETERIORATION [None]
  - DECREASED APPETITE [None]
  - HYPOTENSION [None]
